FAERS Safety Report 7820634-1 (Version None)
Quarter: 2011Q4

REPORT INFORMATION
  Report Type: 
  Country: None (occurrence: None)
  Receive Date: 20111012
  Receipt Date: 20110928
  Transmission Date: 20120403
  Serious: Yes (Death)
  Sender: FDA-Public Use
  Company Number: 2010060862

PATIENT
  Age: 60 Year
  Sex: Female
  Weight: 62.4 kg

DRUGS (14)
  1. DILTIAZEM HCL [Concomitant]
  2. DIOVAN [Concomitant]
  3. DILAUDID [Concomitant]
  4. CEFTRIAXONE [Concomitant]
  5. CIPROFLOXACIN [Concomitant]
  6. DALTEPARIN SODIUM [Suspect]
     Indication: PULMONARY EMBOLISM
     Dosage: 12500 IU, SUBCUTANEOUS,95000 IU, SUBCUTANEOUS
     Route: 058
     Dates: start: 20100504, end: 20100505
  7. DALTEPARIN SODIUM [Suspect]
     Indication: DEEP VEIN THROMBOSIS
     Dosage: 12500 IU, SUBCUTANEOUS,95000 IU, SUBCUTANEOUS
     Route: 058
     Dates: start: 20100504, end: 20100505
  8. DALTEPARIN SODIUM [Suspect]
     Indication: PULMONARY EMBOLISM
     Dosage: 12500 IU, SUBCUTANEOUS,95000 IU, SUBCUTANEOUS
     Route: 058
     Dates: start: 20100428, end: 20100503
  9. DALTEPARIN SODIUM [Suspect]
     Indication: DEEP VEIN THROMBOSIS
     Dosage: 12500 IU, SUBCUTANEOUS,95000 IU, SUBCUTANEOUS
     Route: 058
     Dates: start: 20100428, end: 20100503
  10. ATIVAN [Concomitant]
  11. FENTANYL-100 [Concomitant]
  12. TRAZODONE HYDROCHLORIDE [Concomitant]
  13. HUMULIN R [Concomitant]
  14. METRONIDAZOLE [Concomitant]

REACTIONS (9)
  - DRUG INEFFECTIVE [None]
  - BLOOD PRESSURE DECREASED [None]
  - GASTROINTESTINAL NECROSIS [None]
  - INFECTIOUS PERITONITIS [None]
  - SMALL INTESTINAL OBSTRUCTION [None]
  - ASCITES [None]
  - INTESTINAL ISCHAEMIA [None]
  - MESENTERIC ARTERY THROMBOSIS [None]
  - TACHYCARDIA [None]
